FAERS Safety Report 7994648-5 (Version None)
Quarter: 2011Q4

REPORT INFORMATION
  Report Type: 
  Country: None (occurrence: None)
  Receive Date: 20111220
  Receipt Date: 20111209
  Transmission Date: 20120403
  Serious: Yes (Hospitalization)
  Sender: FDA-Public Use
  Company Number: US-BAYER-2011-040542

PATIENT
  Age: 20 Year
  Sex: Female
  Weight: 117.91 kg

DRUGS (4)
  1. IBUPROFEN [Concomitant]
  2. YASMIN [Suspect]
     Indication: CONTRACEPTION
     Dosage: UNK
     Dates: start: 20050701, end: 20051128
  3. ACETAMINOPHEN [Concomitant]
  4. MARIJUANA [Concomitant]

REACTIONS (12)
  - COUGH [None]
  - LUNG CONSOLIDATION [None]
  - ANXIETY [None]
  - EMOTIONAL DISTRESS [None]
  - PAIN [None]
  - MUSCULOSKELETAL PAIN [None]
  - DYSPNOEA [None]
  - PULMONARY EMBOLISM [None]
  - PULMONARY INFARCTION [None]
  - CHEST PAIN [None]
  - BACK PAIN [None]
  - FEAR OF DISEASE [None]
